APPROVED DRUG PRODUCT: MYRBETRIQ
Active Ingredient: MIRABEGRON
Strength: 25MG
Dosage Form/Route: TABLET, EXTENDED RELEASE;ORAL
Application: N202611 | Product #001 | TE Code: AB
Applicant: ASTELLAS PHARMA GLOBAL DEVELOPMENT INC
Approved: Jun 28, 2012 | RLD: Yes | RS: Yes | Type: RX

PATENTS:
Patent 8772315 | Expires: Oct 30, 2028
Patent 10842780 | Expires: Sep 28, 2029
Patent 12097189 | Expires: Sep 28, 2029
Patent 12097189 | Expires: Sep 28, 2029
Patent 11707451 | Expires: Sep 28, 2029
Patent 11707451 | Expires: Sep 28, 2029
Patent 10842780 | Expires: Sep 28, 2029
Patent 12059409 | Expires: Sep 28, 2029
Patent 8772315*PED | Expires: Apr 30, 2029
Patent 11707451*PED | Expires: Mar 28, 2030
Patent 12097189*PED | Expires: Mar 28, 2030
Patent 10842780*PED | Expires: Mar 28, 2030
Patent 12059409*PED | Expires: Mar 28, 2030